FAERS Safety Report 11696992 (Version 9)
Quarter: 2016Q3

REPORT INFORMATION
  Report Type: Spontaneous
  Country: US (occurrence: US)
  Receive Date: 20151104
  Receipt Date: 20160812
  Transmission Date: 20161109
  Serious: Yes (Hospitalization)
  Sender: FDA-Public Use
  Company Number: US-ACTELION-A-NJ2015-126539

PATIENT
  Age: 49 Year
  Sex: Male

DRUGS (4)
  1. WARFARIN [Concomitant]
     Active Substance: WARFARIN
  2. TRACLEER [Suspect]
     Active Substance: BOSENTAN
     Indication: PULMONARY HYPERTENSION
     Dosage: 125 MG, BID
     Route: 048
     Dates: start: 20090803
  3. RIOCIGUAT [Concomitant]
     Active Substance: RIOCIGUAT
  4. REMODULIN [Concomitant]
     Active Substance: TREPROSTINIL

REACTIONS (12)
  - Device related infection [Recovering/Resolving]
  - Medical device change [Unknown]
  - Infusion site irritation [Unknown]
  - Gait disturbance [Unknown]
  - Swelling [Unknown]
  - Pyrexia [Recovering/Resolving]
  - Infusion site erythema [Unknown]
  - Arthralgia [Unknown]
  - Sepsis [Recovering/Resolving]
  - Infusion site pain [Unknown]
  - Infusion site inflammation [Unknown]
  - Skin warm [Unknown]
